FAERS Safety Report 9288258 (Version 2)
Quarter: 2013Q3

REPORT INFORMATION
  Report Type: Spontaneous
  Country: US (occurrence: US)
  Receive Date: 20130514
  Receipt Date: 20130726
  Transmission Date: 20140515
  Serious: Yes (Death, Other)
  Sender: FDA-Public Use
  Company Number: US-CELGENEUS-163-21880-13051711

PATIENT
  Age: 73 Year
  Sex: Male

DRUGS (15)
  1. REVLIMID [Suspect]
     Indication: PLASMA CELL MYELOMA
     Dosage: 25 MILLIGRAM
     Route: 048
     Dates: start: 20130225
  2. ASA [Concomitant]
     Indication: PRODUCT USED FOR UNKNOWN INDICATION
     Route: 065
  3. DOCUSATE [Concomitant]
     Indication: PRODUCT USED FOR UNKNOWN INDICATION
     Route: 065
  4. TOPROL XL [Concomitant]
     Indication: PRODUCT USED FOR UNKNOWN INDICATION
     Route: 065
  5. MULTIVITAMINS [Concomitant]
     Indication: PRODUCT USED FOR UNKNOWN INDICATION
     Route: 065
  6. OXYCODONE [Concomitant]
     Indication: PRODUCT USED FOR UNKNOWN INDICATION
     Route: 065
  7. SENNA [Concomitant]
     Indication: PRODUCT USED FOR UNKNOWN INDICATION
     Dosage: 5
     Route: 065
  8. ZOMETA [Concomitant]
     Indication: PRODUCT USED FOR UNKNOWN INDICATION
     Route: 065
  9. DEXAMETHASONE [Concomitant]
     Indication: PRODUCT USED FOR UNKNOWN INDICATION
     Route: 065
  10. PACKED RED BLOOD CELLS [Concomitant]
     Indication: PRODUCT USED FOR UNKNOWN INDICATION
     Route: 041
     Dates: start: 20130216, end: 20130216
  11. PACKED RED BLOOD CELLS [Concomitant]
     Route: 041
     Dates: start: 20130226, end: 20130226
  12. PACKED RED BLOOD CELLS [Concomitant]
     Route: 041
     Dates: start: 20130308, end: 20130308
  13. PACKED RED BLOOD CELLS [Concomitant]
     Route: 041
     Dates: start: 20130320, end: 20130320
  14. PACKED RED BLOOD CELLS [Concomitant]
     Route: 041
     Dates: start: 20130331, end: 20130331
  15. FUROSEMIDE [Concomitant]
     Indication: PRODUCT USED FOR UNKNOWN INDICATION
     Route: 065

REACTIONS (3)
  - Plasma cell myeloma [Fatal]
  - Amyloidosis [Fatal]
  - Cardiac failure congestive [Not Recovered/Not Resolved]
